FAERS Safety Report 8525556-9 (Version None)
Quarter: 2012Q3

REPORT INFORMATION
  Report Type: 
  Country: None (occurrence: None)
  Receive Date: 20120720
  Receipt Date: 20120717
  Transmission Date: 20120928
  Serious: Yes (Disabling)
  Sender: FDA-Public Use
  Company Number: US-009507513-1112USA00431

PATIENT

DRUGS (1)
  1. PROPECIA [Suspect]
     Dosage: UNK MG, UNK
     Route: 048

REACTIONS (3)
  - ERECTILE DYSFUNCTION [None]
  - PUDENDAL CANAL SYNDROME [None]
  - PELVIC PAIN [None]
